FAERS Safety Report 6390622-3 (Version None)
Quarter: 2009Q4

REPORT INFORMATION
  Report Type: 
  Country: None (occurrence: None)
  Receive Date: 20091006
  Receipt Date: 20090925
  Transmission Date: 20100525
  Serious: Yes (Hospitalization)
  Sender: FDA-Public Use
  Company Number: US-AVENTIS-200916172US

PATIENT
  Sex: Male
  Weight: 83.5 kg

DRUGS (7)
  1. LOVENOX [Suspect]
     Indication: THROMBOSIS
     Dates: start: 20090714
  2. LOVENOX [Suspect]
     Indication: ANTICOAGULANT THERAPY
     Dates: start: 20090714
  3. WARFARIN [Concomitant]
     Indication: ATRIAL FIBRILLATION
     Dates: start: 20090713
  4. SIMVASTATIN [Concomitant]
     Dates: start: 20090712
  5. DIGOXIN [Concomitant]
     Dates: start: 20090711
  6. LISINOPRIL [Concomitant]
     Indication: HYPERTENSION
     Dates: start: 20090711
  7. FUROSEMIDE [Concomitant]
     Dates: start: 20090711

REACTIONS (2)
  - DIZZINESS [None]
  - FLUSHING [None]
